FAERS Safety Report 5042801-5 (Version None)
Quarter: 2006Q3

REPORT INFORMATION
  Report Type: 
  Country: None (occurrence: None)
  Receive Date: 20060705
  Receipt Date: 20060624
  Transmission Date: 20061208
  Serious: Yes (Other)
  Sender: FDA-Public Use
  Company Number: US-GLAXOSMITHKLINE-A0610870A

PATIENT
  Age: 50 Year
  Sex: Male

DRUGS (6)
  1. NICORETTE (MINT) [Suspect]
     Indication: DRUG USE FOR UNKNOWN INDICATION
     Dosage: 2MG SEE DOSAGE TEXT
  2. ZETIA [Concomitant]
  3. AVALIDE [Concomitant]
  4. ZOLOFT [Concomitant]
  5. FLOMAX [Concomitant]
  6. AVODART [Concomitant]

REACTIONS (6)
  - ASTHENIA [None]
  - DEPENDENCE [None]
  - DRUG ADMINISTRATION ERROR [None]
  - IRRITABILITY [None]
  - OVERDOSE [None]
  - TREATMENT NONCOMPLIANCE [None]
